FAERS Safety Report 9017169 (Version 1)
Quarter: 2013Q1

REPORT INFORMATION
  Report Type: Spontaneous
  Country: US (occurrence: US)
  Receive Date: 20130117
  Receipt Date: 20130117
  Transmission Date: 20140127
  Serious: Yes (Other)
  Sender: FDA-Public Use
  Company Number: US-BAYER-2013-005082

PATIENT
  Age: 28 Year
  Sex: Female
  Weight: 69.39 kg

DRUGS (2)
  1. YAZ [Suspect]
  2. GIANVI [Suspect]

REACTIONS (1)
  - Deep vein thrombosis [None]
